FAERS Safety Report 5787611-6 (Version None)
Quarter: 2008Q2

REPORT INFORMATION
  Report Type: 
  Country: None (occurrence: None)
  Receive Date: 20080625
  Receipt Date: 20071016
  Transmission Date: 20081010
  Serious: No
  Sender: FDA-Public Use
  Company Number: US-ASTRAZENECA-2007UW24032

PATIENT
  Age: 72 Year
  Sex: Female
  Weight: 68.9 kg

DRUGS (2)
  1. PULMICORT FLEXHALER [Suspect]
     Dosage: ONCE IN THE MORNING AND ONCE IN THE EVENING
     Route: 055
  2. PROVENTIL [Concomitant]

REACTIONS (1)
  - DRY EYE [None]
